FAERS Safety Report 7955158-4 (Version None)
Quarter: 2011Q4

REPORT INFORMATION
  Report Type: 
  Country: None (occurrence: None)
  Receive Date: 20111202
  Receipt Date: 20111119
  Transmission Date: 20120403
  Serious: Yes (Death, Hospitalization)
  Sender: FDA-Public Use
  Company Number: IL-ROCHE-1005479

PATIENT
  Age: 59 Year
  Sex: Female

DRUGS (7)
  1. TARGIN [Concomitant]
     Dates: start: 20110501, end: 20111017
  2. VEMURAFENIB [Suspect]
     Route: 048
     Dates: start: 20110928, end: 20111001
  3. PREGABALIN [Concomitant]
     Dates: start: 20110705, end: 20111017
  4. CALTRATE + D [Concomitant]
     Dosage: REPORTED AS CALTRAT + VIT D
     Dates: start: 20110708, end: 20111017
  5. VEMURAFENIB [Suspect]
     Route: 048
     Dates: start: 20111002, end: 20111013
  6. OMEPRAZOLE [Concomitant]
     Dates: start: 20110927, end: 20111017
  7. VEMURAFENIB [Suspect]
     Indication: METASTATIC MALIGNANT MELANOMA
     Route: 048
     Dates: start: 20110704

REACTIONS (2)
  - DEATH [None]
  - STUPOR [None]
